FAERS Safety Report 20006756 (Version 1)
Quarter: 2021Q4

REPORT INFORMATION
  Report Type: Spontaneous
  Country: GB (occurrence: GB)
  Receive Date: 20211028
  Receipt Date: 20211028
  Transmission Date: 20220303
  Serious: Yes (Other)
  Sender: FDA-Public Use
  Company Number: None

PATIENT
  Age: 32 Year
  Sex: Female
  Weight: 40 kg

DRUGS (5)
  1. OMEPRAZOLE [Suspect]
     Active Substance: OMEPRAZOLE
     Indication: Product used for unknown indication
     Dosage: 20 MG, QD
     Route: 065
     Dates: start: 20211019
  2. CLOTRIMAZOLE [Concomitant]
     Active Substance: CLOTRIMAZOLE
     Indication: Product used for unknown indication
     Dosage: UNK, QD (APPLY 2-3TIMES)
     Route: 065
     Dates: start: 20211004, end: 20211018
  3. FLUCONAZOLE [Concomitant]
     Active Substance: FLUCONAZOLE
     Indication: Prophylaxis
     Dosage: 1 DF, QW (TAKE ONE TABLET EVERY WEEK FOR UP TO 6 MONTHS FOR PROPHYLACTIC PURPOSES)
     Route: 065
     Dates: start: 20211004
  4. BUTYLSCOPOLAMINE BROMIDE [Concomitant]
     Active Substance: BUTYLSCOPOLAMINE BROMIDE
     Indication: Product used for unknown indication
     Dosage: 2 DF, QID (TAKE TWO 4 TIMES/DAY)
     Route: 065
     Dates: start: 20210828, end: 20210904
  5. METRONIDAZOLE [Concomitant]
     Active Substance: METRONIDAZOLE
     Indication: Product used for unknown indication
     Dosage: 1 DF, TID (TAKE ONE 3 TIMES/DAY)
     Route: 065
     Dates: start: 20210828, end: 20210904

REACTIONS (1)
  - Gingival swelling [Recovering/Resolving]

NARRATIVE: CASE EVENT DATE: 20211022
